FAERS Safety Report 25747551 (Version 1)
Quarter: 2025Q3

REPORT INFORMATION
  Report Type: Report from Study
  Country: US (occurrence: US)
  Receive Date: 20250901
  Receipt Date: 20250901
  Transmission Date: 20251020
  Serious: Yes (Other)
  Sender: ABBVIE
  Company Number: US-ABBVIE-6435264

PATIENT
  Age: 47 Year
  Sex: Female

DRUGS (1)
  1. HUMIRA [Suspect]
     Active Substance: ADALIMUMAB
     Indication: Rheumatoid arthritis
     Route: 058
     Dates: start: 2023, end: 202408

REACTIONS (6)
  - Hip surgery [Unknown]
  - Surgery [Unknown]
  - Rheumatoid arthritis [Not Recovered/Not Resolved]
  - Myalgia [Unknown]
  - Feeling abnormal [Unknown]
  - Stress [Unknown]

NARRATIVE: CASE EVENT DATE: 20240601
